FAERS Safety Report 5781604-0 (Version None)
Quarter: 2008Q2

REPORT INFORMATION
  Report Type: 
  Country: None (occurrence: None)
  Receive Date: 20080623
  Receipt Date: 20080611
  Transmission Date: 20081010
  Serious: Yes (Hospitalization)
  Sender: FDA-Public Use
  Company Number: JP-JNJFOC-20080501372

PATIENT
  Sex: Male

DRUGS (10)
  1. LEVOFLOXACIN [Suspect]
     Indication: BRONCHITIS
     Route: 065
  2. MEFENAMIC ACID [Suspect]
     Indication: PYREXIA
     Route: 048
  3. MEFENAMIC ACID [Suspect]
     Indication: PNEUMONIA
     Route: 048
  4. CLARITHROMYCIN [Suspect]
     Indication: PYREXIA
     Route: 048
  5. CLARITHROMYCIN [Suspect]
     Indication: PNEUMONIA
     Route: 048
  6. KIPRES [Suspect]
     Indication: COUGH
     Route: 048
  7. THEOLONG [Suspect]
     Indication: COUGH
     Route: 048
  8. ROCEPHIN [Suspect]
     Indication: PNEUMONIA
     Route: 041
  9. HOKUNALIN [Suspect]
     Indication: COUGH
     Route: 062
  10. LLSYROP [Concomitant]

REACTIONS (3)
  - EOSINOPHILIC PNEUMONIA [None]
  - HEPATIC FUNCTION ABNORMAL [None]
  - RASH [None]
